FAERS Safety Report 7965457-8 (Version None)
Quarter: 2011Q4

REPORT INFORMATION
  Report Type: 
  Country: None (occurrence: None)
  Receive Date: 20111206
  Receipt Date: 20111206
  Transmission Date: 20120403
  Serious: Yes (Hospitalization)
  Sender: FDA-Public Use
  Company Number: None

PATIENT
  Sex: Male
  Weight: 160.12 kg

DRUGS (1)
  1. BEVACIZUMAB (RHUMAB VEGF) [Suspect]
     Dosage: 3200 MG
     Dates: end: 20111117

REACTIONS (6)
  - CARDIAC DISORDER [None]
  - DEEP VEIN THROMBOSIS [None]
  - PULMONARY HYPERTENSION [None]
  - DIZZINESS [None]
  - SYNCOPE [None]
  - PULMONARY EMBOLISM [None]
